FAERS Safety Report 23062701 (Version 3)
Quarter: 2023Q4

REPORT INFORMATION
  Report Type: Report from Study
  Country: US (occurrence: US)
  Receive Date: 20231013
  Receipt Date: 20231220
  Transmission Date: 20240110
  Serious: No
  Sender: FDA-Public Use
  Company Number: US-002147023-NVSC2023US219993

PATIENT
  Sex: Female

DRUGS (1)
  1. ENTRESTO [Suspect]
     Active Substance: SACUBITRIL\VALSARTAN
     Indication: Product used for unknown indication
     Dosage: 1 DOSAGE FORM, QD
     Route: 065
     Dates: start: 202307

REACTIONS (6)
  - Malaise [Unknown]
  - Illness [Unknown]
  - Cough [Unknown]
  - Abdominal discomfort [Unknown]
  - Eating disorder [Unknown]
  - Gait disturbance [Unknown]
